FAERS Safety Report 4998613-1 (Version None)
Quarter: 2006Q2

REPORT INFORMATION
  Report Type: 
  Country: None (occurrence: None)
  Receive Date: 20060509
  Receipt Date: 20060426
  Transmission Date: 20061013
  Serious: Yes (Death, Life-Threatening)
  Sender: FDA-Public Use
  Company Number: 223194

PATIENT
  Age: 40 Year
  Sex: Female
  Weight: 95 kg

DRUGS (19)
  1. MABTHERA (RITUXIMAB) CON FOR SOLUTION FOR INFUSION [Suspect]
     Indication: DIFFUSE LARGE B-CELL LYMPHOMA
     Dosage: INTRAVENOUS
     Route: 042
     Dates: start: 20060114, end: 20060128
  2. BLEOMYCINE (BLEOMYCINE SULFATE) [Suspect]
     Indication: DIFFUSE LARGE B-CELL LYMPHOMA
     Dosage: INTRAVENOUS
     Route: 042
     Dates: start: 20060113, end: 20060131
  3. VINDESINE (VINDESINE) [Suspect]
     Indication: DIFFUSE LARGE B-CELL LYMPHOMA
     Dosage: 4 MG, INTRAVENOUS
     Route: 042
     Dates: start: 20060115, end: 20060129
  4. DOXORUBICIN HYDROCHLORIDE [Suspect]
     Indication: DIFFUSE LARGE B-CELL LYMPHOMA
     Dosage: INTRAVENOUS
     Route: 042
     Dates: start: 20060115, end: 20060129
  5. CYCLOPHOSPHAMIDE [Suspect]
     Indication: DIFFUSE LARGE B-CELL LYMPHOMA
     Dosage: INTRAVENOUS
     Route: 042
     Dates: start: 20060114, end: 20060128
  6. SOLU-MEDROL [Concomitant]
  7. METHOTREXATE [Concomitant]
  8. BACTRIM DS [Concomitant]
  9. CEFIXIME [Concomitant]
  10. CIPROFLOXACIN HCL [Concomitant]
  11. SPECIAFOLDINE (FOLIC ACID) [Concomitant]
  12. FLUCONAZOLE [Concomitant]
  13. ZELITREX (VALACICLOVIR) [Concomitant]
  14. OMEPRAZOLE [Concomitant]
  15. ACENOCOUMAROL (ACENOCOUMAROL) [Concomitant]
  16. GRANOCYTE 34 (LENOGRASTIM) [Concomitant]
  17. ALLOPURINOL [Concomitant]
  18. EPINEPHRINE [Concomitant]
  19. DIALYSIS (DIALYSIS TREATMENT AND DEVICES) [Concomitant]

REACTIONS (20)
  - ACUTE RESPIRATORY DISTRESS SYNDROME [None]
  - BONE MARROW FAILURE [None]
  - CARDIAC ARREST [None]
  - CARDIAC FAILURE [None]
  - COAGULOPATHY [None]
  - DEEP VEIN THROMBOSIS [None]
  - DIALYSIS [None]
  - DRUG TOXICITY [None]
  - DYSPNOEA [None]
  - GASTROENTERITIS [None]
  - HYPOVOLAEMIC SHOCK [None]
  - INFECTION [None]
  - LABILE BLOOD PRESSURE [None]
  - MALAISE [None]
  - MICROANGIOPATHY [None]
  - MYELOCYTOSIS [None]
  - PSEUDOMONAS INFECTION [None]
  - RENAL FAILURE [None]
  - SEPSIS [None]
  - SEPTIC SHOCK [None]
